FAERS Safety Report 14609233 (Version 1)
Quarter: 2018Q1

REPORT INFORMATION
  Report Type: Spontaneous
  Country: DE (occurrence: DE)
  Receive Date: 20180307
  Receipt Date: 20180307
  Transmission Date: 20180509
  Serious: Yes (Other)
  Sender: FDA-Public Use
  Company Number: DE-LPDUSPRD-20171613

PATIENT
  Age: 35 Year
  Sex: Female
  Weight: 54 kg

DRUGS (3)
  1. FERINJECT [Suspect]
     Active Substance: FERRIC CARBOXYMALTOSE
     Dosage: 500 MG/100 ML NS(1 TO1)
     Route: 041
     Dates: start: 20170918, end: 20170918
  2. TESALON [Concomitant]
     Active Substance: BENZONATATE
     Dosage: UNKNOWN AS NEEDED
     Route: 065
     Dates: start: 201707
  3. L-THYROXIN [Concomitant]
     Active Substance: LEVOTHYROXINE SODIUM
     Dosage: 50 MG 1 IN 1 DAY
     Route: 065

REACTIONS (5)
  - Angioedema [Unknown]
  - Flushing [Unknown]
  - Ear swelling [Unknown]
  - Urticaria [Unknown]
  - Pruritus [Unknown]

NARRATIVE: CASE EVENT DATE: 20170918
